FAERS Safety Report 23951241 (Version 2)
Quarter: 2024Q2

REPORT INFORMATION
  Report Type: Spontaneous
  Country: JP (occurrence: JP)
  Receive Date: 20240607
  Receipt Date: 20240614
  Transmission Date: 20240716
  Serious: Yes (Other)
  Sender: FDA-Public Use
  Company Number: JP-ELI_LILLY_AND_COMPANY-JP202406002235

PATIENT
  Age: 75 Year
  Sex: Male

DRUGS (4)
  1. RAMUCIRUMAB [Suspect]
     Active Substance: RAMUCIRUMAB
     Indication: Colon cancer
     Route: 041
  2. IRINOTECAN [Concomitant]
     Active Substance: IRINOTECAN
  3. FLUOROURACIL [Concomitant]
     Active Substance: FLUOROURACIL
  4. DIPHENHYDRAMINE HYDROCHLORIDE [Concomitant]
     Active Substance: DIPHENHYDRAMINE HYDROCHLORIDE

REACTIONS (2)
  - Electrocardiogram QT prolonged [Unknown]
  - Bradycardia [Recovered/Resolved]
